FAERS Safety Report 8105943 (Version 3)
Quarter: 2013Q4

REPORT INFORMATION
  Report Type: Spontaneous
  Country: US (occurrence: US)
  Receive Date: 20110825
  Receipt Date: 20131127
  Transmission Date: 20140711
  Serious: Yes (Hospitalization, Other)
  Sender: FDA-Public Use
  Company Number: US-BAYER-2011-075657

PATIENT
  Age: 33 Year
  Sex: Female
  Weight: 80.73 kg

DRUGS (17)
  1. YAZ [Suspect]
     Dosage: UNK
     Dates: start: 2008, end: 2009
  2. MAXALT [Concomitant]
     Indication: HEADACHE
     Dosage: UNK
     Route: 048
     Dates: start: 20090522, end: 20090720
  3. MAXALT [Concomitant]
     Indication: HEADACHE
     Dosage: UNK
     Dates: start: 20090818
  4. IBUPROFEN [Concomitant]
     Dosage: 800 MG, TID
     Route: 048
     Dates: start: 20090528, end: 20090720
  5. CYMBALTA [Concomitant]
     Dosage: 60 MG, ONCE
     Route: 048
     Dates: start: 20090601
  6. CYMBALTA [Concomitant]
     Dosage: UNK
     Dates: start: 20090818
  7. BYSTOLIC [Concomitant]
     Dosage: 5 MG, ONCE
     Route: 048
     Dates: start: 20090720
  8. BYSTOLIC [Concomitant]
     Dosage: UNK
     Dates: start: 20090818
  9. TOPIRAMATE [Concomitant]
     Dosage: 50 MG, BID
     Route: 048
     Dates: start: 20090720
  10. HYDROCODONE W/APAP [Concomitant]
     Dosage: UNK
     Route: 048
     Dates: start: 20090913
  11. TRAMADOL [Concomitant]
     Dosage: 50 MG, TID
     Route: 048
     Dates: start: 20090816
  12. CIPROFLOXACIN [Concomitant]
     Dosage: 500 MG, BID
     Route: 048
     Dates: start: 20090816
  13. PHENAZOPYRIDINE [Concomitant]
     Dosage: 100 MG, TID
     Route: 048
     Dates: start: 20090816
  14. TOPAMAX [Concomitant]
     Dosage: UNK
     Dates: start: 20090818
  15. MOTRIN [Concomitant]
     Dosage: UNK
     Dates: start: 20090818
  16. NAPROSYN [Concomitant]
     Dosage: UNK
     Dates: start: 20090818
  17. LORCET [Concomitant]
     Dosage: UNK
     Dates: start: 20090818

REACTIONS (2)
  - Gallbladder injury [None]
  - Cholecystitis chronic [None]
